FAERS Safety Report 17080588 (Version 1)
Quarter: 2019Q4

REPORT INFORMATION
  Report Type: Report from Study
  Country: SI (occurrence: SI)
  Receive Date: 20191127
  Receipt Date: 20191127
  Transmission Date: 20200122
  Serious: Yes (Other)
  Sender: FDA-Public Use
  Company Number: SI-ACCORD-161792

PATIENT
  Sex: Female

DRUGS (1)
  1. LEVETIRACETAM. [Suspect]
     Active Substance: LEVETIRACETAM
     Indication: EPILEPSY
     Dosage: DAILY DOSE : 1000

REACTIONS (2)
  - Maternal exposure during pregnancy [Unknown]
  - Abortion induced [Unknown]
